FAERS Safety Report 4415840-2 (Version None)
Quarter: 2004Q3

REPORT INFORMATION
  Report Type: 
  Country: None (occurrence: None)
  Receive Date: 20040730
  Receipt Date: 20040727
  Transmission Date: 20050211
  Serious: Yes (Death)
  Sender: FDA-Public Use
  Company Number: 2004-07-0956

PATIENT
  Age: 65 Year
  Sex: Male

DRUGS (3)
  1. INTRON A [Suspect]
     Indication: CHRONIC MYELOID LEUKAEMIA
     Dosage: 8 MIU QD SUBCUTANEOUS
     Route: 058
  2. HYDROXYUREA [Suspect]
     Indication: CHRONIC MYELOID LEUKAEMIA
     Dosage: 1 GM QD
  3. YNK-01 [Suspect]
     Indication: CHRONIC MYELOID LEUKAEMIA
     Dosage: 600 MG QD ORAL
     Route: 048

REACTIONS (5)
  - CRYPTOGENIC ORGANIZING PNEUMONIA [None]
  - HEART RATE INCREASED [None]
  - LUNG NEOPLASM [None]
  - LYMPHADENOPATHY MEDIASTINAL [None]
  - PULMONARY BULLA [None]
